FAERS Safety Report 9387520 (Version 4)
Quarter: 2013Q4

REPORT INFORMATION
  Report Type: Spontaneous
  Country: GB (occurrence: None)
  Receive Date: 20130627
  Receipt Date: 20131030
  Transmission Date: 20140711
  Serious: Yes (Other)
  Sender: FDA-Public Use
  Company Number: 2013036695

PATIENT
  Age: 60 Year
  Sex: Male

DRUGS (8)
  1. PRIVIGEN (IMMUNE GLOBULIN INTRAVENOUS (HUMAN) 10% LIQUID) [Suspect]
     Indication: CHRONIC INFLAMMATORY DEMYELINATING POLYRADICULONEUROPATHY
     Dosage: 80 G TOTAL, 4 X 20 G (START 22 ML/H, MAX 90 ML)
     Route: 042
     Dates: start: 20130520, end: 20130522
  2. MACROGOL (MACROGOL) [Concomitant]
  3. LANSOPRAZOLE (LANSOPRAZOLE) [Concomitant]
  4. PARACETAMOL (PARACETAMOL) [Concomitant]
  5. PROPANOLOL (PROPANOLOL) [Concomitant]
  6. VESICARE  /01735902/ (SOLIFENACIN SUCCINATE) [Concomitant]
  7. THIAMINE (THIAMINE) [Concomitant]
  8. VITAMIN B-COMPLEX  /01753401/ (VITAMIN-B-KOMPLEX STANDARD) [Concomitant]

REACTIONS (4)
  - Pulmonary embolism [None]
  - Joint swelling [None]
  - Deep vein thrombosis [None]
  - Oedema [None]
